FAERS Safety Report 8361476-0 (Version None)
Quarter: 2012Q2

REPORT INFORMATION
  Report Type: 
  Country: None (occurrence: None)
  Receive Date: 20120514
  Receipt Date: 20120507
  Transmission Date: 20120825
  Serious: Yes (Hospitalization, Other)
  Sender: FDA-Public Use
  Company Number: 2012SP018948

PATIENT
  Sex: Female

DRUGS (3)
  1. VICTRELIS [Suspect]
     Indication: HEPATITIS C
     Dates: start: 20120316
  2. PEG-INTRON [Suspect]
     Indication: HEPATITIS C
     Dates: start: 20120217
  3. RIBAVIRIN [Suspect]
     Indication: HEPATITIS C
     Dates: start: 20120217

REACTIONS (13)
  - MEMORY IMPAIRMENT [None]
  - DYSPHAGIA [None]
  - THIRST [None]
  - BLOOD POTASSIUM DECREASED [None]
  - FOREIGN BODY [None]
  - VOMITING [None]
  - DYSGEUSIA [None]
  - DIARRHOEA [None]
  - HYPOPHAGIA [None]
  - WEIGHT DECREASED [None]
  - MENTAL DISORDER [None]
  - DEHYDRATION [None]
  - MUSCLE SPASMS [None]
